FAERS Safety Report 17811568 (Version 2)
Quarter: 2020Q2

REPORT INFORMATION
  Report Type: Spontaneous
  Country: US (occurrence: US)
  Receive Date: 20200521
  Receipt Date: 20200527
  Transmission Date: 20200714
  Serious: Yes (Other)
  Sender: FDA-Public Use
  Company Number: US-PFIZER INC-2020201875

PATIENT
  Age: 46 Year
  Sex: Female

DRUGS (10)
  1. ERYTHROMYCIN. [Concomitant]
     Active Substance: ERYTHROMYCIN
     Dosage: UNK
  2. LOSARTAN POTASSIUM. [Concomitant]
     Active Substance: LOSARTAN POTASSIUM
     Dosage: 100 MG
  3. HYDROCHLOROTHIAZIDE. [Concomitant]
     Active Substance: HYDROCHLOROTHIAZIDE
     Dosage: 25 MG
  4. XELJANZ [Suspect]
     Active Substance: TOFACITINIB CITRATE
     Indication: COLITIS ULCERATIVE
     Dosage: 10 MG, 2X/DAY
     Route: 048
     Dates: start: 20191122, end: 20200519
  5. IRON [Concomitant]
     Active Substance: IRON
     Dosage: UNK [IRON 159(45)MG TABLET ER]
  6. MELATONIN/PYRIDOXINE/THEANINE [Concomitant]
     Dosage: 3 MG
  7. POTASSIUM [Concomitant]
     Active Substance: POTASSIUM
     Dosage: UNK [ POTASSIUM 595(99)MG TABLET]
  8. PENTASA [Concomitant]
     Active Substance: MESALAMINE
     Dosage: 250 MG
  9. PREDNISONE. [Concomitant]
     Active Substance: PREDNISONE
     Dosage: 20 MG
  10. RETIN-A [Concomitant]
     Active Substance: TRETINOIN
     Dosage: UNK

REACTIONS (4)
  - Colitis [Unknown]
  - Drug ineffective [Unknown]
  - Inflammation [Not Recovered/Not Resolved]
  - Condition aggravated [Unknown]

NARRATIVE: CASE EVENT DATE: 20200515
